FAERS Safety Report 15308641 (Version 1)
Quarter: 2018Q3

REPORT INFORMATION
  Report Type: Spontaneous
  Country: US (occurrence: US)
  Receive Date: 20180822
  Receipt Date: 20180822
  Transmission Date: 20181010
  Serious: No
  Sender: FDA-Public Use
  Company Number: US-TARO-2017TAR00708

PATIENT
  Age: 64 Year
  Sex: Female

DRUGS (4)
  1. METRONIDAZOLE GEL USP 0.75% [Suspect]
     Active Substance: METRONIDAZOLE
     Indication: ROSACEA
     Dosage: UNK UNK, ONCE
     Route: 061
     Dates: start: 20170410, end: 20170410
  2. PRAVASTATIN. [Concomitant]
     Active Substance: PRAVASTATIN
  3. BUSPIRONE [Concomitant]
     Active Substance: BUSPIRONE HYDROCHLORIDE
  4. DOXYCYCLINE. [Concomitant]
     Active Substance: DOXYCYCLINE
     Dosage: UNK
     Dates: start: 20170410

REACTIONS (13)
  - Skin discolouration [Not Recovered/Not Resolved]
  - Rosacea [Not Recovered/Not Resolved]
  - Acne [Not Recovered/Not Resolved]
  - Fear [Unknown]
  - Flushing [Unknown]
  - Eye pruritus [Not Recovered/Not Resolved]
  - Ocular hyperaemia [Unknown]
  - Emotional distress [Not Recovered/Not Resolved]
  - Conjunctivitis [Unknown]
  - Erythema of eyelid [Unknown]
  - Eye irritation [Unknown]
  - Pruritus [Not Recovered/Not Resolved]
  - Erythema [Not Recovered/Not Resolved]

NARRATIVE: CASE EVENT DATE: 20170411
